FAERS Safety Report 23172959 (Version 3)
Quarter: 2025Q1

REPORT INFORMATION
  Report Type: Report from Study
  Country: US (occurrence: US)
  Receive Date: 20231110
  Receipt Date: 20250106
  Transmission Date: 20250409
  Serious: Yes (Other)
  Sender: TAKEDA
  Company Number: US-TAKEDA-2022TUS039494

PATIENT
  Sex: Female

DRUGS (21)
  1. PONATINIB [Suspect]
     Active Substance: PONATINIB
     Indication: Chronic myeloid leukaemia
  2. PONATINIB [Suspect]
     Active Substance: PONATINIB
     Dosage: 30 MILLIGRAM, QD
  3. PONATINIB [Suspect]
     Active Substance: PONATINIB
     Dosage: 15 MILLIGRAM, QD
  4. PONATINIB [Suspect]
     Active Substance: PONATINIB
     Dosage: 15 MILLIGRAM, QD
  5. REVLIMID [Suspect]
     Active Substance: LENALIDOMIDE
     Indication: Chronic myeloid leukaemia
  6. AMBRISENTAN [Suspect]
     Active Substance: AMBRISENTAN
     Indication: Chronic myeloid leukaemia
  7. TADALAFIL [Concomitant]
     Active Substance: TADALAFIL
  8. ASPIRIN [Concomitant]
     Active Substance: ASPIRIN
  9. WELLBUTRIN XL [Concomitant]
     Active Substance: BUPROPION HYDROCHLORIDE
  10. ONDANSETRON HYDROCHLORIDE [Concomitant]
     Active Substance: ONDANSETRON HYDROCHLORIDE
  11. FAMOTIDINE [Concomitant]
     Active Substance: FAMOTIDINE
  12. GLIPIZIDE [Concomitant]
     Active Substance: GLIPIZIDE
  13. ELIQUIS [Concomitant]
     Active Substance: APIXABAN
  14. VALACYCLOVIR HYDROCHLORIDE [Concomitant]
     Active Substance: VALACYCLOVIR HYDROCHLORIDE
  15. SULFAMETHOXAZOLE AND TRIMETHOPRIM [Concomitant]
     Active Substance: SULFAMETHOXAZOLE\TRIMETHOPRIM
  16. GABAPENTIN [Concomitant]
     Active Substance: GABAPENTIN
  17. BACTRIM [Concomitant]
     Active Substance: SULFAMETHOXAZOLE\TRIMETHOPRIM
  18. BUPROPION HYDROCHLORIDE [Concomitant]
     Active Substance: BUPROPION HYDROCHLORIDE
  19. POMALIDOMIDE [Concomitant]
     Active Substance: POMALIDOMIDE
  20. DIETARY SUPPLEMENT [Concomitant]
     Active Substance: DIETARY SUPPLEMENT
  21. OMEGA 3 [Concomitant]
     Active Substance: CAPSAICIN

REACTIONS (8)
  - Plasma cell myeloma [Unknown]
  - Bronchitis [Unknown]
  - Feeling hot [Unknown]
  - Product dose omission issue [Unknown]
  - Abdominal pain upper [Unknown]
  - Muscle spasms [Unknown]
  - Hyperhidrosis [Unknown]
  - Fatigue [Unknown]
